FAERS Safety Report 6876829-7 (Version None)
Quarter: 2010Q2

REPORT INFORMATION
  Report Type: 
  Country: None (occurrence: None)
  Receive Date: 20100616
  Receipt Date: 20100503
  Transmission Date: 20101027
  Serious: No
  Sender: FDA-Public Use
  Company Number: DSA_43086_2010

PATIENT
  Sex: Female

DRUGS (1)
  1. XENAZINE [Suspect]
     Indication: HUNTINGTON'S CHOREA
     Dosage: 25 MG BID ORAL
     Route: 048
     Dates: start: 20091101

REACTIONS (1)
  - MUSCULAR WEAKNESS [None]
